FAERS Safety Report 12160809 (Version 1)
Quarter: 2016Q1

REPORT INFORMATION
  Report Type: Report from Study
  Country: BR (occurrence: BR)
  Receive Date: 20160308
  Receipt Date: 20160308
  Transmission Date: 20160526
  Serious: Yes (Other)
  Sender: FDA-Public Use
  Company Number: BR-JNJFOC-20160305410

PATIENT
  Age: 38 Year
  Sex: Female

DRUGS (1)
  1. STELARA [Suspect]
     Active Substance: USTEKINUMAB
     Indication: PSORIASIS
     Route: 058
     Dates: start: 20141118

REACTIONS (3)
  - Influenza [Not Recovered/Not Resolved]
  - Drug dose omission [Unknown]
  - Flavivirus infection [Not Recovered/Not Resolved]

NARRATIVE: CASE EVENT DATE: 20150811
